FAERS Safety Report 5822956-2 (Version None)
Quarter: 2008Q3

REPORT INFORMATION
  Report Type: 
  Country: None (occurrence: None)
  Receive Date: 20080725
  Receipt Date: 20080718
  Transmission Date: 20090109
  Serious: Yes (Other)
  Sender: FDA-Public Use
  Company Number: A0733924A

PATIENT
  Age: 38 Year
  Sex: Female
  Weight: 58.2 kg

DRUGS (4)
  1. ADVAIR DISKUS 100/50 [Suspect]
     Dosage: 1PUFF TWICE PER DAY
     Route: 055
     Dates: end: 20080502
  2. AUGMENTIN '125' [Suspect]
  3. TRIPHASIL-21 [Concomitant]
     Route: 048
  4. SINGULAIR [Concomitant]
     Route: 048

REACTIONS (3)
  - CANDIDIASIS [None]
  - DEPENDENCE [None]
  - FUNGAL INFECTION [None]
